FAERS Safety Report 10352204 (Version 1)
Quarter: 2014Q3

REPORT INFORMATION
  Report Type: Spontaneous
  Country: US (occurrence: US)
  Receive Date: 20140730
  Receipt Date: 20140730
  Transmission Date: 20150326
  Serious: No
  Sender: FDA-Public Use
  Company Number: US-ABBVIE-14P-163-1253567-00

PATIENT
  Sex: Female

DRUGS (10)
  1. VITAMIN D3 [Concomitant]
     Active Substance: CHOLECALCIFEROL
     Indication: PRODUCT USED FOR UNKNOWN INDICATION
  2. SYNTHROID [Suspect]
     Active Substance: LEVOTHYROXINE SODIUM
     Indication: PRODUCT USED FOR UNKNOWN INDICATION
     Dosage: ON EMPTY STOMACH.
  3. DESMOPRESSIN [Concomitant]
     Active Substance: DESMOPRESSIN
     Indication: PRODUCT USED FOR UNKNOWN INDICATION
     Dosage: 10 MCG/INH SPARY
     Route: 045
  4. ZYRTEC [Concomitant]
     Active Substance: CETIRIZINE HYDROCHLORIDE
     Indication: PRODUCT USED FOR UNKNOWN INDICATION
  5. VITAMIN C [Concomitant]
     Active Substance: ASCORBIC ACID
     Indication: PRODUCT USED FOR UNKNOWN INDICATION
  6. FLONASE [Concomitant]
     Active Substance: FLUTICASONE PROPIONATE
     Indication: PRODUCT USED FOR UNKNOWN INDICATION
     Route: 045
  7. OCELLA [Concomitant]
     Active Substance: DROSPIRENONE\ETHINYL ESTRADIOL
     Indication: PRODUCT USED FOR UNKNOWN INDICATION
     Dosage: 3/0.03MG QD
  8. SYNTHROID [Suspect]
     Active Substance: LEVOTHYROXINE SODIUM
     Indication: PRODUCT USED FOR UNKNOWN INDICATION
  9. SOMATROPIN [Concomitant]
     Active Substance: SOMATROPIN
     Indication: PRODUCT USED FOR UNKNOWN INDICATION
     Route: 050
  10. MULTIVITAMIN [Concomitant]
     Active Substance: VITAMINS
     Indication: PRODUCT USED FOR UNKNOWN INDICATION

REACTIONS (46)
  - Facial pain [Unknown]
  - Salt craving [Unknown]
  - Pollakiuria [Unknown]
  - Disturbance in attention [Unknown]
  - Feeling abnormal [Unknown]
  - Vertigo [Unknown]
  - Obesity [Unknown]
  - Chest pain [Unknown]
  - Asthenia [Unknown]
  - Weight decreased [Unknown]
  - Pruritus [Unknown]
  - Pigmentation disorder [Unknown]
  - Dizziness [Unknown]
  - Urticaria [Unknown]
  - Growth hormone deficiency [Unknown]
  - Eye infection intraocular [Unknown]
  - Myalgia [Unknown]
  - Hypoaesthesia [Unknown]
  - Injection site bruising [Unknown]
  - Wheezing [Unknown]
  - Gastrooesophageal reflux disease [Unknown]
  - Memory impairment [Unknown]
  - Dyspepsia [Unknown]
  - Nausea [Unknown]
  - Neck pain [Unknown]
  - Mood swings [Unknown]
  - Thyroid function test abnormal [Unknown]
  - Attention deficit/hyperactivity disorder [Unknown]
  - Weight increased [Unknown]
  - Eyelid rash [Unknown]
  - Anxiety [Unknown]
  - Muscular weakness [Unknown]
  - Infection [Unknown]
  - Dacryostenosis acquired [Unknown]
  - Back pain [Unknown]
  - Musculoskeletal stiffness [Unknown]
  - Vomiting [Unknown]
  - Headache [Unknown]
  - Depression [Unknown]
  - Migraine with aura [Unknown]
  - Rash [Unknown]
  - Nocturia [Unknown]
  - Fatigue [Unknown]
  - Blood pressure abnormal [Unknown]
  - Psychomotor hyperactivity [Unknown]
  - Hyperhidrosis [Unknown]
